FAERS Safety Report 9398611 (Version 1)
Quarter: 2013Q3

REPORT INFORMATION
  Report Type: Spontaneous
  Country: GB (occurrence: GB)
  Receive Date: 20130712
  Receipt Date: 20130712
  Transmission Date: 20140515
  Serious: Yes (Other)
  Sender: FDA-Public Use
  Company Number: PHHY2013GB073042

PATIENT
  Age: 2 Year
  Sex: Male

DRUGS (2)
  1. OMNITROPE [Suspect]
     Dosage: 0.2 MG, UNK
     Route: 058
  2. OMNITROPE [Suspect]
     Dosage: 0.3 MG, QD
     Route: 058
     Dates: start: 201304

REACTIONS (2)
  - Eye swelling [Unknown]
  - Body temperature increased [Unknown]
